FAERS Safety Report 10898090 (Version 1)
Quarter: 2015Q1

REPORT INFORMATION
  Report Type: Report from Study
  Country: US (occurrence: US)
  Receive Date: 20150309
  Receipt Date: 20150309
  Transmission Date: 20150721
  Serious: No
  Sender: FDA-Public Use
  Company Number: US-ABBVIE-15P-163-1329831-00

PATIENT
  Age: 33 Year
  Sex: Female

DRUGS (2)
  1. NORETHINDRONE ACETATE. [Concomitant]
     Active Substance: NORETHINDRONE ACETATE
     Indication: ENDOMETRIOSIS
  2. LUPRON DEPOT [Suspect]
     Active Substance: LEUPROLIDE ACETATE
     Indication: ENDOMETRIOSIS
     Route: 030
     Dates: start: 20141114

REACTIONS (7)
  - Vaginal discharge [Recovered/Resolved]
  - Bacterial vaginosis [Not Recovered/Not Resolved]
  - Vaginal haemorrhage [Unknown]
  - Vaginal haemorrhage [Unknown]
  - Mood altered [Unknown]
  - Vaginal haemorrhage [Unknown]
  - Hot flush [Unknown]

NARRATIVE: CASE EVENT DATE: 2014
